FAERS Safety Report 12883003 (Version 2)
Quarter: 2018Q2

REPORT INFORMATION
  Report Type: Report from Study
  Country: US (occurrence: US)
  Receive Date: 20161025
  Receipt Date: 20180618
  Transmission Date: 20180711
  Serious: No
  Sender: FDA-Public Use
  Company Number: US-SA-2016SA116591

PATIENT
  Age: 17 Year
  Sex: Male

DRUGS (2)
  1. LUMIZYME [Suspect]
     Active Substance: ALGLUCOSIDASE ALFA
     Indication: GLYCOGEN STORAGE DISEASE TYPE II
     Dosage: DOSE- 1400, FREQUENCY Q2
     Route: 041
     Dates: start: 20090814, end: 20180522
  2. AGALSIDASE BETA [Suspect]
     Active Substance: AGALSIDASE BETA

REACTIONS (4)
  - Vascular access site occlusion [Unknown]
  - Influenza like illness [Unknown]
  - Pain [Unknown]
  - Fatigue [Unknown]

NARRATIVE: CASE EVENT DATE: 20180522
